FAERS Safety Report 8579303-5 (Version None)
Quarter: 2012Q3

REPORT INFORMATION
  Report Type: 
  Country: None (occurrence: None)
  Receive Date: 20120808
  Receipt Date: 20120802
  Transmission Date: 20120928
  Serious: Yes (Death, Other)
  Sender: FDA-Public Use
  Company Number: JP-ROCHE-1097573

PATIENT
  Sex: Female

DRUGS (4)
  1. LEVOFLOXACIN [Concomitant]
     Dates: start: 20090301, end: 20091101
  2. RANIBIZUMAB [Suspect]
     Route: 050
     Dates: start: 20091116
  3. RANIBIZUMAB [Suspect]
     Route: 050
     Dates: start: 20090501
  4. RANIBIZUMAB [Suspect]
     Indication: AGE-RELATED MACULAR DEGENERATION
     Route: 050
     Dates: start: 20090331

REACTIONS (4)
  - DEATH [None]
  - PNEUMONIA ASPIRATION [None]
  - HIP FRACTURE [None]
  - FALL [None]
